FAERS Safety Report 14007680 (Version 1)
Quarter: 2017Q3

REPORT INFORMATION
  Report Type: Spontaneous
  Country: IT (occurrence: IT)
  Receive Date: 20170925
  Receipt Date: 20170925
  Transmission Date: 20171128
  Serious: Yes (Hospitalization)
  Sender: FDA-Public Use
  Company Number: IT-ACCORD-058877

PATIENT
  Age: 45 Year
  Sex: Female
  Weight: 50 kg

DRUGS (3)
  1. CISPLATIN ACCORD [Suspect]
     Active Substance: CISPLATIN
     Indication: ADENOCARCINOMA OF THE CERVIX
     Route: 041
     Dates: start: 20170403, end: 20170403
  2. AVASTIN [Concomitant]
     Active Substance: BEVACIZUMAB
     Indication: ADENOCARCINOMA OF THE CERVIX
     Dosage: STRENGTH - 400 MG
     Route: 041
     Dates: start: 20170403, end: 20170403
  3. PACLITAXEL KABI [Concomitant]
     Active Substance: PACLITAXEL
     Indication: ADENOCARCINOMA OF THE CERVIX
     Dosage: 271.3 MG
     Dates: start: 20170403, end: 20170403

REACTIONS (3)
  - Gastrointestinal toxicity [Recovered/Resolved]
  - Acute kidney injury [Unknown]
  - Dehydration [Unknown]

NARRATIVE: CASE EVENT DATE: 20170403
